FAERS Safety Report 6669387-3 (Version None)
Quarter: 2010Q2

REPORT INFORMATION
  Report Type: 
  Country: None (occurrence: None)
  Receive Date: 20100406
  Receipt Date: 20100330
  Transmission Date: 20101027
  Serious: Yes (Other)
  Sender: FDA-Public Use
  Company Number: B0637016A

PATIENT
  Sex: Female

DRUGS (2)
  1. LAMICTAL CD [Suspect]
     Route: 065
  2. LEVETIRACETAM [Concomitant]
     Route: 065

REACTIONS (1)
  - IVTH NERVE PARALYSIS [None]
